FAERS Safety Report 18242097 (Version 5)
Quarter: 2021Q3

REPORT INFORMATION
  Report Type: Spontaneous
  Country: US (occurrence: US)
  Receive Date: 20200908
  Receipt Date: 20210929
  Transmission Date: 20211014
  Serious: Yes (Other)
  Sender: FDA-Public Use
  Company Number: US-PFIZER INC-2020270410

PATIENT
  Age: 63 Year
  Sex: Female

DRUGS (1)
  1. GENOTROPIN [Suspect]
     Active Substance: SOMATROPIN
     Dosage: 0.4 MG, DAILY

REACTIONS (6)
  - Poor quality device used [Unknown]
  - Device leakage [Unknown]
  - Feeling abnormal [Unknown]
  - Hypothalamo-pituitary disorder [Unknown]
  - Drug dose omission by device [Unknown]
  - Device delivery system issue [Unknown]
